FAERS Safety Report 5154808-8 (Version None)
Quarter: 2006Q4

REPORT INFORMATION
  Report Type: 
  Country: None (occurrence: None)
  Receive Date: 20061121
  Receipt Date: 20061006
  Transmission Date: 20070319
  Serious: Yes (Death)
  Sender: FDA-Public Use
  Company Number: DE-BAYER-200611319BVD

PATIENT
  Age: 31 Year
  Sex: Male

DRUGS (3)
  1. AVELOX [Suspect]
     Indication: BRONCHOPNEUMONIA
     Route: 048
     Dates: start: 20060925, end: 20060901
  2. SPASMO- MUCOSOLVAN [Concomitant]
     Route: 048
     Dates: start: 20060925
  3. FORADIL [Concomitant]
     Dates: start: 20060927

REACTIONS (1)
  - RIGHT VENTRICULAR FAILURE [None]
